FAERS Safety Report 7527727-7 (Version None)
Quarter: 2011Q2

REPORT INFORMATION
  Report Type: 
  Country: None (occurrence: None)
  Receive Date: 20110527
  Receipt Date: 20110512
  Transmission Date: 20111010
  Serious: Yes (Hospitalization)
  Sender: FDA-Public Use
  Company Number: JP-2011-10587

PATIENT
  Age: 68 Year
  Sex: Female
  Weight: 31.7 kg

DRUGS (10)
  1. PIMOBENDAN (PIMOBENDAN) [Concomitant]
  2. ISOSORBIDE MONONITRATE [Concomitant]
  3. ALDACTONE [Concomitant]
  4. DIART (AZOSEMIDE) [Concomitant]
  5. ARTIST (CARVEDILOL) [Concomitant]
  6. SAMSCA [Suspect]
     Indication: CARDIAC FAILURE CONGESTIVE
     Dosage: 7.5 MG MILLIGRAM(S), QOD, ORAL ; 7.5 MG MILLIGRAM(S), QOD, ORAL
     Route: 048
     Dates: start: 20110221, end: 20110325
  7. SAMSCA [Suspect]
     Indication: CARDIAC FAILURE CONGESTIVE
     Dosage: 7.5 MG MILLIGRAM(S), QOD, ORAL ; 7.5 MG MILLIGRAM(S), QOD, ORAL
     Route: 048
     Dates: start: 20110214, end: 20110218
  8. LASIX [Concomitant]
  9. WARARIN (WARFARIN POTASSIUM) [Concomitant]
  10. ENALAPRIL MALEATE [Concomitant]

REACTIONS (10)
  - FLUID INTAKE REDUCED [None]
  - THIRST [None]
  - ARRHYTHMIA [None]
  - INTERNATIONAL NORMALISED RATIO INCREASED [None]
  - DECREASED APPETITE [None]
  - BLOOD UREA INCREASED [None]
  - DEHYDRATION [None]
  - CIRCULATORY COLLAPSE [None]
  - BLOOD CREATININE INCREASED [None]
  - MALAISE [None]
